FAERS Safety Report 7683364-5 (Version None)
Quarter: 2011Q3

REPORT INFORMATION
  Report Type: 
  Country: None (occurrence: None)
  Receive Date: 20110815
  Receipt Date: 20110729
  Transmission Date: 20111222
  Serious: Yes (Death, Other)
  Sender: FDA-Public Use
  Company Number: US-BAYER-200939870NA

PATIENT
  Age: 43 Year
  Sex: Female
  Weight: 113.38 kg

DRUGS (13)
  1. LISINOPRIL [Concomitant]
     Dosage: 10 MG, ONCE
     Route: 048
  2. ADVIL LIQUI-GELS [Concomitant]
     Indication: PRODUCT USED FOR UNKNOWN INDICATION
     Dosage: UNK UNK, PRN
     Route: 048
  3. INSULIN LISPRO [Concomitant]
     Dosage: SLIDING SCALE
     Route: 058
  4. LANTUS [Concomitant]
     Dosage: 25 U, ONCE
     Route: 058
  5. LASIX [Concomitant]
     Dosage: 40 MG, ONCE
     Route: 048
     Dates: end: 20040128
  6. NAPROXEN (ALEVE) [Concomitant]
     Indication: PRODUCT USED FOR UNKNOWN INDICATION
     Dosage: UNK UNK, PRN
     Route: 048
  7. PRAVACHOL [Concomitant]
     Dosage: 40 MG, ONCE
     Route: 048
  8. ACETAMINOPHEN [Concomitant]
     Indication: PRODUCT USED FOR UNKNOWN INDICATION
     Dosage: UNK UNK, PRN
     Route: 048
  9. QUININE SULFATE [Concomitant]
     Indication: MUSCLE SPASMS
     Dosage: 325 MG, AS NEEDED
     Route: 048
  10. METOPROLOL TARTRATE [Concomitant]
     Dosage: 150 MG, BID
     Route: 048
  11. TRASYLOL [Suspect]
     Indication: CORONARY ARTERY BYPASS
     Dosage: 200 ML, LOADING DOSE
     Route: 042
     Dates: start: 20040129
  12. MOTRIN [Concomitant]
     Indication: PRODUCT USED FOR UNKNOWN INDICATION
     Dosage: UNK UNK, PRN
     Route: 048
  13. ASPIRIN [Concomitant]
     Indication: PRODUCT USED FOR UNKNOWN INDICATION
     Dosage: UNK UNK, PRN
     Route: 048

REACTIONS (14)
  - DEATH [None]
  - RENAL INJURY [None]
  - FEAR [None]
  - PAIN [None]
  - INJURY [None]
  - STRESS [None]
  - RENAL FAILURE [None]
  - EMOTIONAL DISTRESS [None]
  - ANHEDONIA [None]
  - EMOTIONAL DISORDER [None]
  - RENAL IMPAIRMENT [None]
  - MULTI-ORGAN FAILURE [None]
  - ANXIETY [None]
  - UNEVALUABLE EVENT [None]
